FAERS Safety Report 6643162-8 (Version None)
Quarter: 2010Q1

REPORT INFORMATION
  Report Type: 
  Country: None (occurrence: None)
  Receive Date: 20100319
  Receipt Date: 20100309
  Transmission Date: 20100710
  Serious: Yes (Other)
  Sender: FDA-Public Use
  Company Number: B0638376A

PATIENT
  Age: 39 Year
  Sex: Male

DRUGS (3)
  1. PIRITON [Suspect]
     Indication: PREMEDICATION
     Route: 042
     Dates: start: 20100225, end: 20100225
  2. HYDROCORTISONE [Suspect]
     Indication: PREMEDICATION
     Route: 042
     Dates: start: 20100225, end: 20100225
  3. REMICADE [Suspect]
     Indication: CROHN'S DISEASE
     Route: 042
     Dates: start: 20100225

REACTIONS (5)
  - COLD SWEAT [None]
  - HEART RATE DECREASED [None]
  - INFUSION RELATED REACTION [None]
  - NAUSEA [None]
  - SYNCOPE [None]
